FAERS Safety Report 10744849 (Version 2)
Quarter: 2015Q2

REPORT INFORMATION
  Report Type: Spontaneous
  Country: CA (occurrence: None)
  Receive Date: 20150126
  Receipt Date: 20150422
  Transmission Date: 20150821
  Serious: Yes (Life-Threatening, Hospitalization, Other)
  Sender: FDA-Public Use
  Company Number: AMAG201500023

PATIENT
  Age: 69 Year
  Sex: Male
  Weight: 107 kg

DRUGS (14)
  1. PANTOLOC (PANTOPRAZOLE SODIUM SESQUIHYDRATE) [Concomitant]
  2. MAVIK (TRANDOLAPRIL) [Concomitant]
  3. FERAHEME [Suspect]
     Active Substance: FERUMOXYTOL NON-STOICHIOMETRIC MAGNETITE
     Indication: ANAEMIA
     Route: 042
  4. DIAMICRON (GLICLAZIDE) [Concomitant]
     Active Substance: GLICLAZIDE
  5. METFORMIN [Concomitant]
     Active Substance: METFORMIN HYDROCHLORIDE
  6. MONOCOR (BISOPROLOL FUMARATE) [Concomitant]
  7. FLOMAX [Concomitant]
     Active Substance: TAMSULOSIN HYDROCHLORIDE
  8. DIGOXIN. [Concomitant]
     Active Substance: DIGOXIN
  9. LASIX [Concomitant]
     Active Substance: FUROSEMIDE
  10. ADVAIR DISKUS [Concomitant]
     Active Substance: FLUTICASONE PROPIONATE\SALMETEROL XINAFOATE
  11. VENTOLIN (SALBUTAMOL SULFATE) [Concomitant]
  12. CALCIUM + VITAMIN D (CALCIUM, COLECALCIFEROL) [Concomitant]
  13. LIPITOR [Concomitant]
     Active Substance: ATORVASTATIN CALCIUM
  14. APIXABAN [Concomitant]
     Active Substance: APIXABAN

REACTIONS (5)
  - Anaphylactic reaction [None]
  - Hypotension [None]
  - Anxiety [None]
  - Bronchospasm [None]
  - Tachycardia [None]
